FAERS Safety Report 23862598 (Version 1)
Quarter: 2024Q2

REPORT INFORMATION
  Report Type: Spontaneous
  Country: GB (occurrence: GB)
  Receive Date: 20240516
  Receipt Date: 20240516
  Transmission Date: 20240715
  Serious: Yes (Life-Threatening, Hospitalization, Other)
  Sender: FDA-Public Use
  Company Number: GB-PFIZER INC-202400108272

PATIENT
  Age: 10 Month
  Sex: Male

DRUGS (9)
  1. TOPOTECAN HYDROCHLORIDE [Suspect]
     Active Substance: TOPOTECAN HYDROCHLORIDE
     Indication: Primitive neuroectodermal tumour
     Dosage: UNK, CYCLIC
     Route: 037
  2. METHOTREXATE [Concomitant]
     Active Substance: METHOTREXATE
     Indication: Primitive neuroectodermal tumour
     Dosage: UNK, CYCLIC
  3. CISPLATIN [Concomitant]
     Active Substance: CISPLATIN
     Indication: Primitive neuroectodermal tumour
     Dosage: UNK, CYCLIC
  4. CYCLOPHOSPHAMIDE [Concomitant]
     Active Substance: CYCLOPHOSPHAMIDE
     Indication: Primitive neuroectodermal tumour
     Dosage: UNK, CYCLIC
  5. VINCRISTINE [Concomitant]
     Active Substance: VINCRISTINE
     Indication: Primitive neuroectodermal tumour
     Dosage: UNK, CYCLIC
  6. ETOPOSIDE [Concomitant]
     Active Substance: ETOPOSIDE
     Indication: Primitive neuroectodermal tumour
     Dosage: UNK, CYCLIC
  7. CARBOPLATIN [Concomitant]
     Active Substance: CARBOPLATIN
     Indication: Primitive neuroectodermal tumour
     Dosage: UNK, CYCLIC
  8. THIOTEPA [Concomitant]
     Active Substance: THIOTEPA
     Indication: Primitive neuroectodermal tumour
     Dosage: UNK, CYCLIC
  9. TRETINOIN [Concomitant]
     Active Substance: TRETINOIN
     Indication: Primitive neuroectodermal tumour
     Dosage: UNK, CYCLIC

REACTIONS (5)
  - Hypotonia [Recovered/Resolved]
  - Coma [Recovered/Resolved]
  - Neurological symptom [Recovered/Resolved]
  - Off label use [Unknown]
  - Off label use [Unknown]
